FAERS Safety Report 4388838-0 (Version None)
Quarter: 2004Q3

REPORT INFORMATION
  Report Type: 
  Country: None (occurrence: None)
  Receive Date: 20040702
  Receipt Date: 20040624
  Transmission Date: 20050211
  Serious: Yes (Life-Threatening)
  Sender: FDA-Public Use
  Company Number: PHBS2004ES08551

PATIENT
  Age: 29 Year
  Sex: Male

DRUGS (5)
  1. TRILEPTAL [Suspect]
     Indication: PERSONALITY DISORDER
     Dosage: 300 MG/D
     Route: 048
  2. TRILEPTAL [Suspect]
     Dosage: UNK, ONCE/SINGLE
     Route: 048
     Dates: start: 20040501, end: 20040501
  3. VENLAFAXINE [Suspect]
  4. OLANZAPINE [Suspect]
  5. NOCTAMID [Suspect]

REACTIONS (2)
  - COMA [None]
  - OVERDOSE [None]
